FAERS Safety Report 17313123 (Version 1)
Quarter: 2020Q1

REPORT INFORMATION
  Report Type: Spontaneous
  Country: US (occurrence: US)
  Receive Date: 20200124
  Receipt Date: 20200124
  Transmission Date: 20200409
  Serious: No
  Sender: FDA-Public Use
  Company Number: US-ZYDUS-043184

PATIENT

DRUGS (1)
  1. HALOPERIDOL. [Suspect]
     Active Substance: HALOPERIDOL
     Indication: PRODUCT USED FOR UNKNOWN INDICATION
     Route: 065

REACTIONS (6)
  - Oculogyric crisis [Unknown]
  - Akathisia [Unknown]
  - Adverse event [Unknown]
  - Anxiety [Unknown]
  - Oromandibular dystonia [Unknown]
  - Dystonia [Unknown]
